FAERS Safety Report 13560706 (Version 1)
Quarter: 2017Q2

REPORT INFORMATION
  Report Type: Spontaneous
  Country: US (occurrence: US)
  Receive Date: 20170518
  Receipt Date: 20170518
  Transmission Date: 20170830
  Serious: Yes (Other)
  Sender: FDA-Public Use
  Company Number: US-APOPHARMA USA, INC.-2017AP012236

PATIENT

DRUGS (1)
  1. ALKERAN [Suspect]
     Active Substance: MELPHALAN
     Indication: VITREOUS FLOATERS
     Dosage: 30 ?G, OTHER
     Route: 050

REACTIONS (2)
  - Lenticular opacities [Unknown]
  - Retinal pigment epitheliopathy [Unknown]
